FAERS Safety Report 19626585 (Version 2)
Quarter: 2021Q3

REPORT INFORMATION
  Report Type: Report from Study
  Country: IT (occurrence: IT)
  Receive Date: 20210729
  Receipt Date: 20210803
  Transmission Date: 20211014
  Serious: Yes (Other)
  Sender: FDA-Public Use
  Company Number: IT-GLAXOSMITHKLINE-IT2021GSK162207

PATIENT
  Age: 61 Year

DRUGS (2)
  1. DOSTARLIMAB [Suspect]
     Active Substance: DOSTARLIMAB
     Indication: ENDOMETRIAL CANCER
     Dosage: UNK
     Dates: start: 20210525, end: 20210525
  2. DOSTARLIMAB [Suspect]
     Active Substance: DOSTARLIMAB
     Dosage: UNK
     Dates: start: 20210615, end: 20210615

REACTIONS (1)
  - Malignant neoplasm progression [Unknown]
